FAERS Safety Report 9664124 (Version 1)
Quarter: 2013Q4

REPORT INFORMATION
  Report Type: Spontaneous
  Country: US (occurrence: None)
  Receive Date: 20131030
  Receipt Date: 20131030
  Transmission Date: 20140711
  Serious: No
  Sender: FDA-Public Use
  Company Number: None

PATIENT
  Age: 51 Year
  Sex: Female

DRUGS (1)
  1. SIMVASTATIN [Suspect]
     Indication: HYPERCHOLESTEROLAEMIA
     Dosage: 1X20MG DAILY PO
     Route: 048
     Dates: start: 20130923

REACTIONS (5)
  - Headache [None]
  - Chills [None]
  - Nausea [None]
  - Product quality issue [None]
  - Product substitution issue [None]
